FAERS Safety Report 5402790-8 (Version None)
Quarter: 2007Q3

REPORT INFORMATION
  Report Type: 
  Country: None (occurrence: None)
  Receive Date: 20070801
  Receipt Date: 20070726
  Transmission Date: 20080115
  Serious: Yes (Other)
  Sender: FDA-Public Use
  Company Number: BR-ASTRAZENECA-2007UW18190

PATIENT
  Age: 26 Year
  Sex: Male
  Weight: 65 kg

DRUGS (1)
  1. SYMBICORT [Suspect]
     Indication: ASTHMA
     Dosage: 320/9 UGQD
     Route: 055
     Dates: start: 20070301

REACTIONS (5)
  - COUGH [None]
  - DRY THROAT [None]
  - MUSCLE SPASMS [None]
  - PHARYNGEAL ERYTHEMA [None]
  - THROAT IRRITATION [None]
